FAERS Safety Report 5261097-2 (Version None)
Quarter: 2007Q1

REPORT INFORMATION
  Report Type: 
  Country: None (occurrence: None)
  Receive Date: 20070309
  Receipt Date: 20070302
  Transmission Date: 20070707
  Serious: Yes (Other)
  Sender: FDA-Public Use
  Company Number: US-ELI_LILLY_AND_COMPANY-US200703001363

PATIENT
  Sex: Male

DRUGS (4)
  1. CIALIS [Suspect]
     Indication: ERECTILE DYSFUNCTION
     Dosage: 10 MG, UNK
     Dates: start: 20050101
  2. CIALIS [Suspect]
     Dosage: 10 MG, UNK
     Dates: start: 20061001
  3. CIALIS [Suspect]
     Dosage: 20 MG, UNK
  4. VIAGRA [Concomitant]
     Dosage: UNK, UNKNOWN

REACTIONS (10)
  - CHEST DISCOMFORT [None]
  - CHEST PAIN [None]
  - DRUG INEFFECTIVE [None]
  - DYSPEPSIA [None]
  - ERUCTATION [None]
  - FLATULENCE [None]
  - GASTROOESOPHAGEAL REFLUX DISEASE [None]
  - HICCUPS [None]
  - PHARMACEUTICAL PRODUCT COMPLAINT [None]
  - PROSTATECTOMY [None]
